FAERS Safety Report 8804946 (Version 2)
Quarter: 2015Q4

REPORT INFORMATION
  Report Type: Report from Study
  Country: FR (occurrence: FR)
  Receive Date: 20120924
  Receipt Date: 20151008
  Transmission Date: 20160305
  Serious: Yes (Hospitalization)
  Sender: FDA-Public Use
  Company Number: FR-ROCHE-1123672

PATIENT
  Age: 70 Year
  Sex: Female
  Weight: 61 kg

DRUGS (13)
  1. LASILIX [Concomitant]
     Active Substance: FUROSEMIDE
     Route: 065
  2. TOCILIZUMAB [Suspect]
     Active Substance: TOCILIZUMAB
     Indication: RHEUMATOID ARTHRITIS
     Dosage: LAST ROACTEMRA INFUSION ADMINISTERED ON 22/JUN/2011
     Route: 042
     Dates: start: 20110523, end: 20121005
  3. KALEORID [Concomitant]
     Active Substance: POTASSIUM CHLORIDE
     Route: 065
  4. TARDYFERON (FRANCE) [Concomitant]
     Route: 065
  5. INEXIUM [Concomitant]
     Active Substance: ESOMEPRAZOLE
     Route: 065
  6. ACEBUTOLOL [Concomitant]
     Active Substance: ACEBUTOLOL
     Route: 065
  7. LASILIX [Concomitant]
     Active Substance: FUROSEMIDE
     Route: 065
  8. AMLOR [Concomitant]
     Active Substance: AMLODIPINE BESYLATE
     Route: 065
  9. LERCAN [Concomitant]
     Active Substance: LERCANIDIPINE
     Route: 065
  10. COVERSYL [Concomitant]
     Active Substance: PERINDOPRIL
     Route: 065
  11. RILMENIDINE [Concomitant]
     Active Substance: RILMENIDINE
     Route: 065
  12. SOLUPRED (PREDNISOLONE) [Concomitant]
     Active Substance: PREDNISOLONE
     Route: 065
     Dates: end: 20121005
  13. ACEBUTOLOL [Concomitant]
     Active Substance: ACEBUTOLOL
     Route: 065

REACTIONS (8)
  - Muscle haemorrhage [Recovered/Resolved]
  - Acute pulmonary oedema [Recovered/Resolved]
  - Cholangitis acute [Recovered/Resolved]
  - Cholangitis acute [Recovered/Resolved]
  - Atrial fibrillation [Recovered/Resolved]
  - Escherichia pyelonephritis [Recovered/Resolved with Sequelae]
  - Cholecystitis [Recovered/Resolved]
  - Septic shock [Recovered/Resolved]

NARRATIVE: CASE EVENT DATE: 201107
